FAERS Safety Report 5795315-9 (Version None)
Quarter: 2008Q2

REPORT INFORMATION
  Report Type: 
  Country: None (occurrence: None)
  Receive Date: 20080601
  Receipt Date: 20080129
  Transmission Date: 20081010
  Serious: No
  Sender: FDA-Public Use
  Company Number: US200801006671

PATIENT
  Age: 60 Year
  Sex: Male
  Weight: 89.3 kg

DRUGS (7)
  1. BYETTA [Suspect]
     Indication: TYPE 2 DIABETES MELLITUS
     Dosage: 5 UG, 2/D, SUBCUTANEOUS; 10 UG, 2/D, SUBCUTANEOUS
     Route: 058
     Dates: start: 20070801, end: 20070901
  2. BYETTA [Suspect]
     Indication: TYPE 2 DIABETES MELLITUS
     Dosage: 5 UG, 2/D, SUBCUTANEOUS; 10 UG, 2/D, SUBCUTANEOUS
     Route: 058
     Dates: start: 20070901
  3. EXENATIDE 10MCG PEN, DISPOSABLE DEVICE [Concomitant]
  4. GLYBURIDE AND METFORMIN HCL [Concomitant]
  5. ZETIA [Concomitant]
  6. GLUCOSAMINE SULFATE (GLUCOSAMINE SULFATE) [Concomitant]
  7. MULTIVITAMIN [Concomitant]

REACTIONS (3)
  - NAUSEA [None]
  - PARANASAL SINUS HYPERSECRETION [None]
  - VOMITING [None]
